FAERS Safety Report 5058920-3 (Version None)
Quarter: 2006Q2

REPORT INFORMATION
  Report Type: 
  Country: None (occurrence: None)
  Receive Date: 20060628
  Receipt Date: 20050929
  Transmission Date: 20061013
  Serious: Yes (Other)
  Sender: FDA-Public Use
  Company Number: 2005135031

PATIENT
  Sex: 0

DRUGS (3)
  1. RESCRIPTOR [Suspect]
     Indication: HIV INFECTION
  2. APTIVUS/RITONAVIR (RITONAVIR) [Suspect]
     Indication: HIV INFECTION
  3. FUZEON [Suspect]
     Indication: HIV INFECTION

REACTIONS (1)
  - RENAL FAILURE ACUTE [None]
